FAERS Safety Report 4511389-7 (Version None)
Quarter: 2004Q4

REPORT INFORMATION
  Report Type: 
  Country: None (occurrence: None)
  Receive Date: 20041123
  Receipt Date: 20041123
  Transmission Date: 20050328
  Serious: Yes (Other)
  Sender: FDA-Public Use
  Company Number: None

PATIENT
  Sex: Female

DRUGS (1)
  1. CATAPRESS TSS   BOEHRINGER INGELHEIM [Suspect]

REACTIONS (2)
  - CONFUSIONAL STATE [None]
  - SEPSIS [None]
